FAERS Safety Report 5839521-3 (Version None)
Quarter: 2008Q3

REPORT INFORMATION
  Report Type: 
  Country: None (occurrence: None)
  Receive Date: 20080807
  Receipt Date: 20080728
  Transmission Date: 20090109
  Serious: Yes (Hospitalization)
  Sender: FDA-Public Use
  Company Number: 2008014076

PATIENT
  Age: 77 Year
  Sex: Male
  Weight: 90.7194 kg

DRUGS (2)
  1. LISTERINE ANTISEPTIC MOUTHWASH (MENTHOL, METHYL SALICYLATE, EUCALYPTOL [Suspect]
     Indication: DENTAL DISORDER PROPHYLAXIS
     Dosage: MULTIPLE TIMES A DAY, ORAL
     Route: 048
  2. DRUG, UNSPECIFIED [Concomitant]

REACTIONS (4)
  - AGEUSIA [None]
  - DYSGEUSIA [None]
  - GENERAL PHYSICAL HEALTH DETERIORATION [None]
  - HYPOPHAGIA [None]
